FAERS Safety Report 5548782-X (Version None)
Quarter: 2007Q4

REPORT INFORMATION
  Report Type: 
  Country: None (occurrence: None)
  Receive Date: 20071206
  Receipt Date: 20071123
  Transmission Date: 20080405
  Serious: Yes (Hospitalization)
  Sender: FDA-Public Use
  Company Number: 2007S1012145

PATIENT
  Age: 86 Year
  Sex: Female

DRUGS (4)
  1. VANCOMYCINE MERCK (VANCOMYCIN HYDROCHLORIDE) (500 MG) [Suspect]
     Indication: ERYSIPELAS
     Dosage: 500 MG; TWICE A DAY; INTRAVENOUS
     Route: 042
     Dates: start: 20070817, end: 20070822
  2. FORTUM /00559702/ (CEFTAZIDIME PENTAHYDRATE) [Suspect]
     Indication: FEBRILE BONE MARROW APLASIA
     Dosage: 6 GM; DAILY; INTRAVENOUS
     Route: 042
     Dates: start: 20070817, end: 20070822
  3. CIFLOX /00697201/ (CIPROFLOXACIN) [Suspect]
     Indication: URINARY TRACT INFECTION
     Dosage: 400 MG; TWICE A DAY; INTRAVENOUS
     Route: 042
     Dates: start: 20070817, end: 20070820
  4. CIFLOX /00697202/ (CIPROFLOXACIN HYDROCHLORIDE) [Suspect]
     Indication: URINARY TRACT INFECTION
     Dosage: 400 MG; TWICE A DAY; ORAL
     Route: 048
     Dates: start: 20070820, end: 20070822

REACTIONS (2)
  - RASH MACULO-PAPULAR [None]
  - RASH SCARLATINIFORM [None]
